FAERS Safety Report 7273576-7 (Version None)
Quarter: 2011Q1

REPORT INFORMATION
  Report Type: 
  Country: None (occurrence: None)
  Receive Date: 20110203
  Receipt Date: 20100811
  Transmission Date: 20110831
  Serious: No
  Sender: FDA-Public Use
  Company Number: US-ABBOTT-10P-163-0664379-00

PATIENT
  Sex: Female
  Weight: 61.29 kg

DRUGS (2)
  1. SYNTHROID [Suspect]
     Indication: HYPOTHYROIDISM
  2. SYNTHROID [Suspect]
     Indication: HYPOTHYROIDISM
     Dosage: BEFORE LUNCH ON EMPTY STOMACH.
     Route: 048
     Dates: start: 20100101

REACTIONS (6)
  - PRODUCT COATING ISSUE [None]
  - ABDOMINAL PAIN [None]
  - PRODUCT SHAPE ISSUE [None]
  - NAUSEA [None]
  - FEELING JITTERY [None]
  - GASTROINTESTINAL PAIN [None]
